FAERS Safety Report 20333683 (Version 2)
Quarter: 2022Q2

REPORT INFORMATION
  Report Type: Report from Study
  Country: US (occurrence: None)
  Receive Date: 20220113
  Receipt Date: 20220414
  Transmission Date: 20220720
  Serious: Yes (Death, Hospitalization)
  Sender: FDA-Public Use
  Company Number: US-ROCHE-2995813

PATIENT
  Age: 73 Year
  Sex: Male
  Weight: 106.9 kg

DRUGS (4)
  1. ATEZOLIZUMAB [Suspect]
     Active Substance: ATEZOLIZUMAB
     Indication: Adenocarcinoma of colon
     Dosage: ON DAY 1
     Route: 041
     Dates: start: 20210824, end: 20210824
  2. FLUOROURACIL [Suspect]
     Active Substance: FLUOROURACIL
     Indication: Adenocarcinoma of colon
     Dosage: ON DAY 1 FOLLOWED BY 2400MG/M2 IV OVER 46 HOURS DAYS 1-3?ON 24/AUG/2021, LAST DOSE WAS ADMINISTERED.
     Route: 040
  3. LEUCOVORIN CALCIUM [Suspect]
     Active Substance: LEUCOVORIN CALCIUM
     Indication: Adenocarcinoma of colon
     Dosage: OVER 2 HOURS ON DAY 1?ON 24/AUG/2021, LAST DOSE WAS ADMINISTERED.
     Route: 042
  4. OXALIPLATIN [Suspect]
     Active Substance: OXALIPLATIN
     Indication: Adenocarcinoma of colon
     Dosage: OVER 2 HOURS ON DAY 1?ON 24/AUG/2021, LAST DOSE WAS ADMINISTERED.
     Route: 042

REACTIONS (2)
  - Diverticulitis [Recovered/Resolved]
  - Pain [Fatal]

NARRATIVE: CASE EVENT DATE: 20210910
